FAERS Safety Report 23639991 (Version 4)
Quarter: 2024Q2

REPORT INFORMATION
  Report Type: Spontaneous
  Country: US (occurrence: US)
  Receive Date: 20240316
  Receipt Date: 20240506
  Transmission Date: 20240716
  Serious: Yes (Other)
  Sender: FDA-Public Use
  Company Number: US-AMGEN-USASP2024051042

PATIENT
  Sex: Male

DRUGS (9)
  1. KANJINTI [Suspect]
     Active Substance: TRASTUZUMAB-ANNS
     Indication: Product used for unknown indication
     Dosage: UNK
     Route: 065
     Dates: start: 20240228
  2. TUKYSA [Suspect]
     Active Substance: TUCATINIB
     Indication: Rectal cancer
     Dosage: UNK
     Route: 065
     Dates: start: 20240130
  3. CHOLESTYRAMINE [Suspect]
     Active Substance: CHOLESTYRAMINE
     Indication: Product used for unknown indication
     Dosage: 4 GRAM, BID
     Route: 065
  4. CYCLOPHOSPHAMIDE [Concomitant]
     Active Substance: CYCLOPHOSPHAMIDE
     Dosage: 25 MILLIGRAM, QD
  5. METFORMIN [Concomitant]
     Active Substance: METFORMIN HYDROCHLORIDE
     Dosage: 500 MILLIGRAM, QD
  6. SIROLIMUS [Concomitant]
     Active Substance: SIROLIMUS
     Dosage: 6 MILLIGRAM, QWK
  7. METHYLENE BLUE [Concomitant]
     Active Substance: METHYLENE BLUE
     Dosage: 50 MILLIGRAM, 2 TIMES/WK (TWICE WEEKLY)
  8. BENADRYL [Concomitant]
     Active Substance: DIPHENHYDRAMINE HYDROCHLORIDE
     Dosage: 50 MILLIGRAM 1-2X DAILY
  9. DEXAMETHASONE [Concomitant]
     Active Substance: DEXAMETHASONE
     Dosage: 4 MILLIGRAM, 1-2X DAILY

REACTIONS (2)
  - Neuropathy peripheral [Unknown]
  - Diarrhoea [Unknown]
